FAERS Safety Report 5530901-2 (Version None)
Quarter: 2007Q4

REPORT INFORMATION
  Report Type: 
  Country: None (occurrence: None)
  Receive Date: 20071130
  Receipt Date: 20071127
  Transmission Date: 20080405
  Serious: Yes (Hospitalization)
  Sender: FDA-Public Use
  Company Number: FR-ASTRAZENECA-2007CG01690

PATIENT
  Age: 64 Year
  Sex: Female

DRUGS (4)
  1. CRESTOR [Suspect]
     Route: 048
     Dates: start: 20051001
  2. ATENOLOL [Concomitant]
  3. COAPROVEL [Concomitant]
  4. KARDEGIC [Concomitant]

REACTIONS (1)
  - LUPUS-LIKE SYNDROME [None]
